FAERS Safety Report 8114081-5 (Version None)
Quarter: 2012Q1

REPORT INFORMATION
  Report Type: 
  Country: None (occurrence: None)
  Receive Date: 20120203
  Receipt Date: 20111025
  Transmission Date: 20120608
  Serious: Yes (Other)
  Sender: FDA-Public Use
  Company Number: PHHY2011RU115503

PATIENT
  Age: 37 Year
  Sex: Female

DRUGS (1)
  1. FORMOTEROL FUMARATE [Suspect]

REACTIONS (4)
  - HEADACHE [None]
  - TACHYARRHYTHMIA [None]
  - TREMOR [None]
  - FEAR [None]
